FAERS Safety Report 9615869 (Version 1)
Quarter: 2013Q4

REPORT INFORMATION
  Report Type: Spontaneous
  Country: US (occurrence: None)
  Receive Date: 20131010
  Receipt Date: 20131010
  Transmission Date: 20140711
  Serious: Yes (Other)
  Sender: FDA-Public Use
  Company Number: None

PATIENT
  Age: 34 Year
  Sex: Female
  Weight: 56.7 kg

DRUGS (1)
  1. SUBOXONE [Suspect]
     Indication: DRUG DEPENDENCE
     Dosage: 1/2STRIP, THREE TIMES DAILY, TAKEN UNDER THE TONGUE
     Route: 048
     Dates: start: 20130304, end: 20131009

REACTIONS (1)
  - Stomatitis [None]
